FAERS Safety Report 9648996 (Version 2)
Quarter: 2013Q4

REPORT INFORMATION
  Report Type: Spontaneous
  Country: US (occurrence: US)
  Receive Date: 20131028
  Receipt Date: 20131107
  Transmission Date: 20140711
  Serious: Yes (Hospitalization, Other)
  Sender: FDA-Public Use
  Company Number: US-BAXTER-2013BAX041551

PATIENT
  Sex: Female

DRUGS (9)
  1. DIANEAL LOW CALCIUM [Suspect]
     Indication: RENAL FAILURE CHRONIC
     Route: 033
     Dates: start: 20130806
  2. DIANEAL LOW CALCIUM [Suspect]
     Route: 033
     Dates: start: 20130806
  3. DIANEAL LOW CALCIUM [Suspect]
     Indication: RENAL FAILURE CHRONIC
     Route: 033
     Dates: start: 20130806
  4. DIANEAL LOW CALCIUM [Suspect]
     Route: 033
     Dates: start: 20130806
  5. OMEPRAZOLE [Concomitant]
     Indication: GASTRIC ULCER
  6. RANITIDINE [Concomitant]
     Indication: GASTRIC ULCER
  7. ASPIRIN [Concomitant]
     Indication: PRODUCT USED FOR UNKNOWN INDICATION
  8. PRAVASTATIN [Concomitant]
     Indication: PRODUCT USED FOR UNKNOWN INDICATION
  9. PLAVIX [Concomitant]
     Indication: PRODUCT USED FOR UNKNOWN INDICATION

REACTIONS (4)
  - Lung disorder [Unknown]
  - Dehydration [Recovered/Resolved]
  - Abdominal pain upper [Recovered/Resolved]
  - Hypervolaemia [Unknown]
